APPROVED DRUG PRODUCT: TICAGRELOR
Active Ingredient: TICAGRELOR
Strength: 90MG
Dosage Form/Route: TABLET;ORAL
Application: A208531 | Product #001
Applicant: AMNEAL EU LTD
Approved: Jan 23, 2019 | RLD: No | RS: No | Type: DISCN